FAERS Safety Report 7910718-1 (Version None)
Quarter: 2011Q4

REPORT INFORMATION
  Report Type: 
  Country: None (occurrence: None)
  Receive Date: 20111111
  Receipt Date: 20111007
  Transmission Date: 20120403
  Serious: Yes (Disabling)
  Sender: FDA-Public Use
  Company Number: PHHY2011US098311

PATIENT
  Sex: Female
  Weight: 117 kg

DRUGS (7)
  1. VIVELLE-DOT [Suspect]
     Dosage: TWICE WEEKLY
     Route: 062
     Dates: start: 20070101
  2. MIDRIN [Concomitant]
  3. VICODIN [Concomitant]
     Dosage: UNK
  4. VALIUM [Concomitant]
     Dosage: UNK
  5. ESGIC-PLUS [Concomitant]
  6. CYMBALTA [Concomitant]
     Dosage: UNK
  7. AMBIEN [Concomitant]

REACTIONS (5)
  - FIBROMYALGIA [None]
  - VULVOVAGINAL BURNING SENSATION [None]
  - BURNING SENSATION [None]
  - SKIN BURNING SENSATION [None]
  - FEELING ABNORMAL [None]
